FAERS Safety Report 11638871 (Version 1)
Quarter: 2015Q4

REPORT INFORMATION
  Report Type: Report from Study
  Country: US (occurrence: US)
  Receive Date: 20151017
  Receipt Date: 20151017
  Transmission Date: 20160304
  Serious: Yes (Other)
  Sender: FDA-Public Use
  Company Number: US-AMGEN-USASL2015002971

PATIENT
  Age: 24 Year
  Sex: Male

DRUGS (1)
  1. ENBREL [Suspect]
     Active Substance: ETANERCEPT
     Indication: ANKYLOSING SPONDYLITIS
     Dosage: 50 MG, QWK
     Route: 058
     Dates: start: 20140502

REACTIONS (4)
  - Drug abuse [Not Recovered/Not Resolved]
  - Drug rehabilitation [Unknown]
  - Pain [Not Recovered/Not Resolved]
  - Self-medication [Not Recovered/Not Resolved]

NARRATIVE: CASE EVENT DATE: 201501
